FAERS Safety Report 5922506-6 (Version None)
Quarter: 2008Q4

REPORT INFORMATION
  Report Type: 
  Country: None (occurrence: None)
  Receive Date: 20081017
  Receipt Date: 20081007
  Transmission Date: 20090506
  Serious: Yes (Other)
  Sender: FDA-Public Use
  Company Number: PHHY2008ZA16962

PATIENT
  Sex: Male
  Weight: 33.5 kg

DRUGS (4)
  1. RITALIN [Suspect]
     Indication: ATTENTION DEFICIT/HYPERACTIVITY DISORDER
     Dosage: 5MG DAILY
     Route: 048
     Dates: start: 20050101
  2. RITALIN [Suspect]
     Dosage: 10 MG, TID
     Route: 048
  3. RITALIN [Suspect]
     Dosage: 10MG DAILY
     Route: 048
     Dates: end: 20071204
  4. CONCERTA [Concomitant]
     Indication: ATTENTION DEFICIT/HYPERACTIVITY DISORDER
     Dosage: 36MG DAILY
     Dates: start: 20070502, end: 20070601

REACTIONS (21)
  - ATAXIA [None]
  - BLINDNESS [None]
  - BRONCHITIS [None]
  - CONTRAST MEDIA REACTION [None]
  - DIZZINESS [None]
  - DYSPNOEA [None]
  - HEADACHE [None]
  - HYPOTENSION [None]
  - LEARNING DISORDER [None]
  - LETHARGY [None]
  - LOSS OF CONSCIOUSNESS [None]
  - MYDRIASIS [None]
  - OXYGEN SATURATION DECREASED [None]
  - OXYGEN SUPPLEMENTATION [None]
  - PALLOR [None]
  - PALPITATIONS [None]
  - SINUS ARRHYTHMIA [None]
  - SYNCOPE [None]
  - TILT TABLE TEST [None]
  - TONIC CLONIC MOVEMENTS [None]
  - VOMITING [None]
